FAERS Safety Report 7080508-3 (Version None)
Quarter: 2010Q4

REPORT INFORMATION
  Report Type: 
  Country: None (occurrence: None)
  Receive Date: 20101025
  Receipt Date: 20101008
  Transmission Date: 20110411
  Serious: Yes (Disabling, Other)
  Sender: FDA-Public Use
  Company Number: ACO_01886_2010

PATIENT
  Sex: Female
  Weight: 81.6475 kg

DRUGS (6)
  1. AMPYRA [Suspect]
     Indication: GAIT DISTURBANCE
     Dosage: (10 MG BID ORAL)
     Route: 048
     Dates: start: 20100701, end: 20100901
  2. BP MEDICATION (NOT SPECIFIED) [Concomitant]
  3. BACLOFEN [Concomitant]
  4. OXYBUTIN [Concomitant]
  5. AVONEX [Concomitant]
  6. OXYBUTYNIN [Concomitant]

REACTIONS (2)
  - MOVEMENT DISORDER [None]
  - SENSATION OF HEAVINESS [None]
